FAERS Safety Report 7431766-4 (Version None)
Quarter: 2011Q1

REPORT INFORMATION
  Report Type: 
  Country: None (occurrence: None)
  Receive Date: 20110302
  Receipt Date: 20101027
  Transmission Date: 20110831
  Serious: No
  Sender: FDA-Public Use
  Company Number: 021187

PATIENT
  Sex: Male

DRUGS (2)
  1. CIMZIA [Suspect]
     Indication: CROHN'S DISEASE
     Dosage: 800 MG, 4 INJECTIONS SUBCUTANEOUS, 2 INJECTIONS, SUBCUTANEOUS
     Route: 058
     Dates: start: 20101001
  2. CIMZIA [Suspect]
     Indication: CROHN'S DISEASE
     Dosage: 800 MG, 4 INJECTIONS SUBCUTANEOUS, 2 INJECTIONS, SUBCUTANEOUS
     Route: 058
     Dates: start: 20101004

REACTIONS (1)
  - OVERDOSE [None]
